FAERS Safety Report 7464791-8 (Version None)
Quarter: 2011Q2

REPORT INFORMATION
  Report Type: 
  Country: None (occurrence: None)
  Receive Date: 20110503
  Receipt Date: 20110503
  Transmission Date: 20111010
  Serious: Yes (Hospitalization, Other)
  Sender: FDA-Public Use
  Company Number: None

PATIENT
  Sex: Female
  Weight: 61.2356 kg

DRUGS (2)
  1. TRIAD PLUS BZK WIPE WIPE PACKET TRIAD PLUS [Suspect]
     Indication: CYSTITIS INTERSTITIAL
     Dosage: USED ON URETHRA DAILY AND TID URETHRAL
     Route: 066
     Dates: start: 20080220, end: 20110312
  2. TRIAD LUBRICATION JELLY 3 OZ PACKET TRIAD [Suspect]
     Indication: CYSTITIS INTERSTITIAL
     Dosage: USED ON URETHRA AND CATHETER DAILY AND TID URETHRAL
     Route: 066
     Dates: start: 20080220, end: 20110312

REACTIONS (8)
  - PRODUCT QUALITY ISSUE [None]
  - PRODUCT CONTAMINATION [None]
  - MITRAL VALVE INCOMPETENCE [None]
  - ASTHENIA [None]
  - INFECTION [None]
  - INCONTINENCE [None]
  - DYSPNOEA [None]
  - LOSS OF EMPLOYMENT [None]
